FAERS Safety Report 7377446-5 (Version None)
Quarter: 2011Q1

REPORT INFORMATION
  Report Type: 
  Country: None (occurrence: None)
  Receive Date: 20110328
  Receipt Date: 20110318
  Transmission Date: 20110831
  Serious: Yes (Other)
  Sender: FDA-Public Use
  Company Number: US-PFIZER INC-2011031594

PATIENT
  Sex: Female

DRUGS (4)
  1. ACETYLSALICYLIC ACID SRT [Suspect]
     Indication: ANTICOAGULANT THERAPY
     Dosage: 1 DF ON MONDATY AND FRIDAY
  2. ADVIL LIQUI-GELS [Suspect]
     Indication: ARTHRITIS
     Dosage: UNK
     Dates: start: 20110211
  3. ADVIL LIQUI-GELS [Suspect]
     Indication: JOINT SWELLING
     Dosage: 200 MG, UNK
     Route: 048
     Dates: start: 20110101, end: 20110210
  4. METHYLPREDNISOLONE [Concomitant]
     Indication: ANTIINFLAMMATORY THERAPY

REACTIONS (2)
  - ANAPHYLACTIC REACTION [None]
  - PHARYNGEAL OEDEMA [None]
